FAERS Safety Report 13379982 (Version 5)
Quarter: 2017Q2

REPORT INFORMATION
  Report Type: Report from Study
  Country: US (occurrence: US)
  Receive Date: 20170328
  Receipt Date: 20170504
  Transmission Date: 20170830
  Serious: Yes (Hospitalization, Other)
  Sender: FDA-Public Use
  Company Number: US-ALEXION PHARMACEUTICALS INC.-A201702860

PATIENT
  Age: 48 Year
  Sex: Female

DRUGS (1)
  1. SOLIRIS [Suspect]
     Active Substance: ECULIZUMAB
     Indication: HAEMOLYTIC URAEMIC SYNDROME
     Dosage: 1200 MG, Q2W
     Route: 042

REACTIONS (15)
  - Device related infection [Unknown]
  - Stress [Unknown]
  - Cardiac murmur [Unknown]
  - Pain in extremity [Unknown]
  - Chest pain [Unknown]
  - Complication associated with device [Unknown]
  - Anxiety [Unknown]
  - Haemoglobin decreased [Unknown]
  - Heart valve incompetence [Unknown]
  - Blood creatinine increased [Unknown]
  - Blood test abnormal [Unknown]
  - Fluid retention [Unknown]
  - Pain [Unknown]
  - Platelet count decreased [Unknown]
  - Dyspnoea [Unknown]

NARRATIVE: CASE EVENT DATE: 201703
